FAERS Safety Report 5640284-5 (Version None)
Quarter: 2008Q1

REPORT INFORMATION
  Report Type: 
  Country: None (occurrence: None)
  Receive Date: 20080227
  Receipt Date: 20080123
  Transmission Date: 20080703
  Serious: No
  Sender: FDA-Public Use
  Company Number: US-BAXTER-2008BH000174

PATIENT
  Age: 59 Year
  Sex: Female
  Weight: 63 kg

DRUGS (2)
  1. HEPARIN SODIUM [Suspect]
     Indication: THROMBOSIS PROPHYLAXIS
     Dosage: DOSE UNIT:UNKNOWN
     Route: 010
     Dates: start: 20071227
  2. HEPARIN SODIUM [Suspect]
     Dosage: DOSE UNIT:UNKNOWN
     Route: 010
     Dates: start: 20071227

REACTIONS (3)
  - BLOOD PRESSURE DECREASED [None]
  - FEELING ABNORMAL [None]
  - NAUSEA [None]
